FAERS Safety Report 6636731-2 (Version None)
Quarter: 2010Q1

REPORT INFORMATION
  Report Type: 
  Country: None (occurrence: None)
  Receive Date: 20100316
  Receipt Date: 20100309
  Transmission Date: 20100710
  Serious: Yes (Hospitalization)
  Sender: FDA-Public Use
  Company Number: B0640031A

PATIENT
  Age: 67 Year
  Sex: Male
  Weight: 66 kg

DRUGS (7)
  1. OMACOR [Suspect]
     Dosage: 1000MG PER DAY
     Route: 048
     Dates: start: 20100202, end: 20100301
  2. EZETROL [Suspect]
     Route: 048
     Dates: start: 20100202, end: 20100301
  3. CARDENSIEL [Concomitant]
     Dosage: 1TAB PER DAY
  4. COVERSYL [Concomitant]
     Dosage: 2.5MG TWICE PER DAY
     Route: 065
  5. PLAVIX [Concomitant]
     Dosage: 1TAB PER DAY
     Route: 065
  6. KARDEGIC [Concomitant]
     Route: 065
  7. PARIET [Concomitant]
     Indication: ULCER
     Dosage: 1TAB PER DAY
     Route: 065

REACTIONS (3)
  - GAMMA-GLUTAMYLTRANSFERASE INCREASED [None]
  - NAUSEA [None]
  - VOMITING [None]
